FAERS Safety Report 6041711-4 (Version None)
Quarter: 2009Q1

REPORT INFORMATION
  Report Type: 
  Country: None (occurrence: None)
  Receive Date: 20090116
  Receipt Date: 20090107
  Transmission Date: 20090719
  Serious: Yes (Hospitalization)
  Sender: FDA-Public Use
  Company Number: FR-PFIZER INC-2005060862

PATIENT

DRUGS (5)
  1. SUNITINIB MALATE [Suspect]
     Indication: RENAL CELL CARCINOMA
     Dosage: 50 MG, 1X/DAY, CYCLIC
     Route: 048
     Dates: start: 20050311, end: 20050407
  2. SUNITINIB MALATE [Suspect]
     Dosage: CYCLIC
     Route: 048
  3. CODEINE PHOSPHATE AND ACETAMINOPHEN [Concomitant]
     Route: 048
     Dates: start: 19990101
  4. CLOMIPRAMINE [Concomitant]
     Route: 048
     Dates: start: 19840101
  5. TEMESTA [Concomitant]
     Route: 048
     Dates: start: 19840101

REACTIONS (3)
  - CEREBELLAR SYNDROME [None]
  - GENERAL PHYSICAL HEALTH DETERIORATION [None]
  - THROMBOCYTOPENIA [None]
